FAERS Safety Report 8614894-7 (Version None)
Quarter: 2012Q3

REPORT INFORMATION
  Report Type: 
  Country: None (occurrence: None)
  Receive Date: 20120823
  Receipt Date: 20120718
  Transmission Date: 20120928
  Serious: No
  Sender: FDA-Public Use
  Company Number: US-BRISTOL-MYERS SQUIBB COMPANY-16777831

PATIENT
  Sex: Male

DRUGS (2)
  1. METFORMIN HCL [Suspect]
     Indication: BLOOD GLUCOSE INCREASED
  2. KOMBIGLYZE XR [Suspect]
     Indication: BLOOD GLUCOSE INCREASED

REACTIONS (2)
  - DRUG INEFFECTIVE [None]
  - HEADACHE [None]
